FAERS Safety Report 16060519 (Version 3)
Quarter: 2019Q2

REPORT INFORMATION
  Report Type: Spontaneous
  Country: US (occurrence: US)
  Receive Date: 20190312
  Receipt Date: 20190417
  Transmission Date: 20190711
  Serious: Yes (Hospitalization, Other)
  Sender: FDA-Public Use
  Company Number: US-UNITED THERAPEUTICS-UNT-2019-004005

PATIENT
  Age: 22 Year
  Sex: Female

DRUGS (2)
  1. REMODULIN [Suspect]
     Active Substance: TREPROSTINIL
     Dosage: 0.0225 ?G/KG, CONTINUING
     Route: 058
     Dates: start: 20190104
  2. REMODULIN [Suspect]
     Active Substance: TREPROSTINIL
     Indication: PULMONARY ARTERIAL HYPERTENSION
     Dosage: 0.030 ?G/KG, CONTINUING
     Route: 058
     Dates: start: 20190103

REACTIONS (16)
  - Raynaud^s phenomenon [Unknown]
  - Colitis ulcerative [Not Recovered/Not Resolved]
  - Occipital neuralgia [Unknown]
  - Clostridium difficile infection [Not Recovered/Not Resolved]
  - Headache [Unknown]
  - Skin discolouration [Unknown]
  - Infusion site pustule [Unknown]
  - Skin warm [Unknown]
  - Pyrexia [Not Recovered/Not Resolved]
  - Infusion site infection [Unknown]
  - Peripheral swelling [Unknown]
  - Rash [Not Recovered/Not Resolved]
  - Infusion site erythema [Unknown]
  - Contusion [Unknown]
  - Rash macular [Unknown]
  - Infusion site mass [Unknown]

NARRATIVE: CASE EVENT DATE: 201902
